FAERS Safety Report 26061004 (Version 1)
Quarter: 2025Q4

REPORT INFORMATION
  Report Type: Spontaneous
  Country: EU (occurrence: EU)
  Receive Date: 20251118
  Receipt Date: 20251118
  Transmission Date: 20260118
  Serious: Yes (Death, Life-Threatening, Disabling, Congenital Anomaly, Other)
  Sender: MYLAN
  Company Number: EU-EMB-M202406034-2

PATIENT
  Sex: Female

DRUGS (5)
  1. CANDESARTAN [Suspect]
     Active Substance: CANDESARTAN
     Indication: Renal hypertension
     Dosage: 32 MILLIGRAM, QD
     Dates: start: 202310, end: 202405
  2. ENOXAPARIN SODIUM [Concomitant]
     Active Substance: ENOXAPARIN SODIUM
     Indication: Factor V Leiden mutation
     Dosage: 4000 INTERNATIONAL UNIT, QD
  3. FOLIC ACID [Concomitant]
     Active Substance: FOLIC ACID
     Indication: Prophylaxis of neural tube defect
     Dosage: UNKNOWN TRIMESTER
  4. CLOTRIMAZOLE [Concomitant]
     Active Substance: CLOTRIMAZOLE
     Indication: Vulvovaginal mycotic infection
     Dosage: UNKNOWN TRIMESTER
  5. Cariban [Concomitant]
     Indication: Morning sickness
     Dosage: EXACT EXPOSURE DATES UNKNOWN

REACTIONS (7)
  - Pulmonary hypoplasia [Fatal]
  - Death neonatal [Fatal]
  - Premature baby [Recovered/Resolved]
  - Congenital cystic kidney disease [Not Recovered/Not Resolved]
  - Autosomal chromosome anomaly [Not Recovered/Not Resolved]
  - Congenital musculoskeletal disorder of skull [Not Recovered/Not Resolved]
  - Foetal exposure during pregnancy [Unknown]

NARRATIVE: CASE EVENT DATE: 20240601
